FAERS Safety Report 5783108-8 (Version None)
Quarter: 2008Q2

REPORT INFORMATION
  Report Type: 
  Country: None (occurrence: None)
  Receive Date: 20080619
  Receipt Date: 20080619
  Transmission Date: 20081010
  Serious: Yes (Other)
  Sender: FDA-Public Use
  Company Number: None

PATIENT
  Sex: Male
  Weight: 49.9 kg

DRUGS (1)
  1. VINCRISTINE [Suspect]
     Indication: ACUTE LYMPHOCYTIC LEUKAEMIA
     Dosage: 2.5 MG WEEKLY IV BOLUS
     Route: 040
     Dates: start: 20080213, end: 20080303

REACTIONS (1)
  - NEUROPATHY PERIPHERAL [None]
